FAERS Safety Report 17952222 (Version 2)
Quarter: 2021Q2

REPORT INFORMATION
  Report Type: Spontaneous
  Country: US (occurrence: US)
  Receive Date: 20200626
  Receipt Date: 20210615
  Transmission Date: 20210717
  Serious: Yes (Hospitalization, Other)
  Sender: FDA-Public Use
  Company Number: US-INCYTE CORPORATION-2020IN005985

PATIENT

DRUGS (3)
  1. JAKAFI [Suspect]
     Active Substance: RUXOLITINIB
     Indication: POLYCYTHAEMIA VERA
     Dosage: 5 MG (2 TABLETS), QAM AND 5 MG (1 TABLET), QPM
     Route: 048
     Dates: start: 20180605
  2. JAKAFI [Suspect]
     Active Substance: RUXOLITINIB
     Dosage: 5 MILLIGRAM (2 TABLETS QAM AND 1 TAB QPM), 12 HOURS APART
     Route: 048
     Dates: start: 20180605
  3. JAKAFI [Suspect]
     Active Substance: RUXOLITINIB
     Dosage: 5 MILLIGRAM (2 TABLETS QAM AND 1 TAB QPM)
     Route: 048
     Dates: start: 20180605

REACTIONS (5)
  - Dyspnoea [Unknown]
  - Splenomegaly [Unknown]
  - Ligament rupture [Unknown]
  - Haemorrhage [Unknown]
  - Blood disorder [Unknown]
